FAERS Safety Report 10141390 (Version 1)
Quarter: 2014Q2

REPORT INFORMATION
  Report Type: Spontaneous
  Country: CA (occurrence: CA)
  Receive Date: 20140429
  Receipt Date: 20140429
  Transmission Date: 20141212
  Serious: Yes (Life-Threatening)
  Sender: FDA-Public Use
  Company Number: CA-PFIZER INC-2014116325

PATIENT
  Age: 70 Year
  Sex: Male
  Weight: 72.1 kg

DRUGS (8)
  1. CHAMPIX [Suspect]
     Dosage: 0.5 MG, 2X/DAY
     Route: 048
  2. ATROVENT [Concomitant]
     Dosage: UNK
  3. DOMPERIDONE [Concomitant]
     Dosage: UNK
  4. FLOVENT [Concomitant]
     Dosage: UNK
  5. GABAPENTIN [Concomitant]
     Dosage: UNK
  6. RANITIDINE [Concomitant]
     Dosage: UNK
  7. TYLENOL W/CODEINE NO. 3 [Concomitant]
     Dosage: UNK
  8. VENTOLIN [Concomitant]
     Dosage: UNK

REACTIONS (4)
  - Infarction [Unknown]
  - Renal failure acute [Unknown]
  - Blood creatine phosphokinase increased [Unknown]
  - Electrocardiogram abnormal [Unknown]
